FAERS Safety Report 7874694-2 (Version None)
Quarter: 2011Q4

REPORT INFORMATION
  Report Type: 
  Country: None (occurrence: None)
  Receive Date: 20111014
  Receipt Date: 20101122
  Transmission Date: 20120403
  Serious: Yes (Other)
  Sender: FDA-Public Use
  Company Number: 1000017454

PATIENT
  Age: 57 Year
  Sex: Female
  Weight: 72.58 kg

DRUGS (5)
  1. CALCIUM (CALCIUM) (CALCIUM) [Concomitant]
  2. GLYBURIDE [Concomitant]
  3. LEXAPRO [Suspect]
     Indication: ANXIETY
     Dosage: 10 MG (10 MG, 1 IN 1 D), ORAL
     Route: 048
     Dates: start: 20101001, end: 20101121
  4. AMBIEN [Concomitant]
  5. VYTORIN (INEGY) (INEGY) [Concomitant]

REACTIONS (6)
  - INSOMNIA [None]
  - NERVOUSNESS [None]
  - DISTURBANCE IN ATTENTION [None]
  - WEIGHT DECREASED [None]
  - HEADACHE [None]
  - TREMOR [None]
